FAERS Safety Report 9494473 (Version 2)
Quarter: 2013Q3

REPORT INFORMATION
  Report Type: Spontaneous
  Country: CA (occurrence: CA)
  Receive Date: 20130903
  Receipt Date: 20130903
  Transmission Date: 20140515
  Serious: Yes (Hospitalization)
  Sender: FDA-Public Use
  Company Number: CA-ASTELLAS-2013US008877

PATIENT
  Age: 73 Year
  Sex: Male

DRUGS (4)
  1. XTANDI [Suspect]
     Indication: PROSTATE CANCER
     Dosage: UNK MG, UID/QD
     Route: 065
     Dates: start: 20130813
  2. METOPROLOL [Concomitant]
     Indication: PRODUCT USED FOR UNKNOWN INDICATION
     Dosage: UNK
     Route: 065
     Dates: start: 200408, end: 20130806
  3. TOLOXIN                            /00017701/ [Concomitant]
     Indication: PRODUCT USED FOR UNKNOWN INDICATION
     Dosage: UNK
     Route: 065
     Dates: start: 20130807
  4. TOLOXIN                            /00017701/ [Concomitant]
     Dosage: UNK
     Route: 065
     Dates: start: 20120711

REACTIONS (1)
  - Dyspnoea [Recovering/Resolving]
